FAERS Safety Report 9665196 (Version 1)
Quarter: 2013Q4

REPORT INFORMATION
  Report Type: Spontaneous
  Country: US (occurrence: US)
  Receive Date: 20131103
  Receipt Date: 20131103
  Transmission Date: 20140711
  Serious: Yes (Hospitalization)
  Sender: FDA-Public Use
  Company Number: US-MYLANLABS-2013S1023898

PATIENT
  Age: 3 Year
  Sex: Male

DRUGS (2)
  1. VALPROIC ACID [Suspect]
     Indication: MYOCLONUS
     Route: 065
  2. PHENYTOIN [Suspect]
     Indication: MYOCLONUS
     Route: 065

REACTIONS (2)
  - Immune thrombocytopenic purpura [Unknown]
  - Toxic epidermal necrolysis [Unknown]
